FAERS Safety Report 18895782 (Version 1)
Quarter: 2021Q1

REPORT INFORMATION
  Report Type: Spontaneous
  Country: US (occurrence: US)
  Receive Date: 20210215
  Receipt Date: 20210215
  Transmission Date: 20210420
  Serious: Yes (Other)
  Sender: FDA-Public Use
  Company Number: US-ELI_LILLY_AND_COMPANY-US202102003253

PATIENT
  Age: 84 Year
  Sex: Female

DRUGS (2)
  1. BASAGLAR [Suspect]
     Active Substance: INSULIN GLARGINE
     Indication: TYPE 2 DIABETES MELLITUS
     Dosage: UNK UNK, UNKNOWN
     Route: 065
  2. HUMALOG [Suspect]
     Active Substance: INSULIN LISPRO
     Indication: TYPE 2 DIABETES MELLITUS
     Dosage: UNK UNK, UNKNOWN
     Route: 065

REACTIONS (10)
  - Blood glucose increased [Unknown]
  - Pain [Unknown]
  - Weight decreased [Unknown]
  - Inappropriate schedule of product administration [Unknown]
  - Balance disorder [Unknown]
  - Spinal column injury [Unknown]
  - Irritable bowel syndrome [Unknown]
  - Gait inability [Unknown]
  - Glycosylated haemoglobin increased [Unknown]
  - Fall [Unknown]

NARRATIVE: CASE EVENT DATE: 20210203
